FAERS Safety Report 6125115-1 (Version None)
Quarter: 2009Q1

REPORT INFORMATION
  Report Type: 
  Country: None (occurrence: None)
  Receive Date: 20090319
  Receipt Date: 20090316
  Transmission Date: 20090719
  Serious: Yes (Hospitalization)
  Sender: FDA-Public Use
  Company Number: US-ABBOTT-09P-163-0499721-00

PATIENT
  Sex: Male
  Weight: 77.18 kg

DRUGS (9)
  1. ZEMPLAR [Suspect]
     Indication: HYPERPARATHYROIDISM
     Dates: start: 20080901
  2. UNKNOWN PHOSPHORUS PILL [Concomitant]
     Indication: BLOOD PHOSPHORUS
  3. RENAGEL [Concomitant]
     Indication: BLOOD PHOSPHORUS
  4. PANTOPRAZOLE SODIUM [Concomitant]
     Indication: GASTROOESOPHAGEAL REFLUX DISEASE
  5. NORVASC [Concomitant]
     Indication: HYPERTENSION
  6. RANVELA [Concomitant]
     Indication: BLOOD PHOSPHORUS
  7. FOSRENOL [Concomitant]
     Indication: BLOOD PHOSPHORUS
  8. EPOGEN [Concomitant]
     Indication: RED BLOOD CELL COUNT DECREASED
  9. ASPIRIN [Concomitant]
     Indication: DRUG USE FOR UNKNOWN INDICATION

REACTIONS (5)
  - EPISTAXIS [None]
  - HAEMATURIA [None]
  - HAEMOGLOBIN DECREASED [None]
  - HAEMOPTYSIS [None]
  - LYMPHADENOPATHY [None]
